FAERS Safety Report 24034771 (Version 1)
Quarter: 2024Q3

REPORT INFORMATION
  Report Type: Spontaneous
  Country: JP (occurrence: JP)
  Receive Date: 20240701
  Receipt Date: 20240701
  Transmission Date: 20241017
  Serious: No
  Sender: ELI LILLY AND CO
  Company Number: JP-NShinyaku-EVA202205400ZZLILLY

PATIENT
  Age: 86 Year
  Sex: Male

DRUGS (2)
  1. TADALAFIL [Suspect]
     Active Substance: TADALAFIL
     Indication: Benign prostatic hyperplasia
     Dosage: 5 MG, DAILY
     Route: 048
     Dates: start: 20220112, end: 20240606
  2. TAMSULOSIN HYDROCHLORIDE [Concomitant]
     Active Substance: TAMSULOSIN HYDROCHLORIDE
     Indication: Benign prostatic hyperplasia
     Dosage: UNKNOWN
     Route: 048

REACTIONS (2)
  - Visual field defect [Recovered/Resolved]
  - Visual field defect [Recovered/Resolved]

NARRATIVE: CASE EVENT DATE: 20220813
